FAERS Safety Report 7955374-1 (Version None)
Quarter: 2011Q4

REPORT INFORMATION
  Report Type: 
  Country: None (occurrence: None)
  Receive Date: 20111202
  Receipt Date: 20111123
  Transmission Date: 20120403
  Serious: Yes (Hospitalization)
  Sender: FDA-Public Use
  Company Number: PHHO2011IE08453

PATIENT
  Sex: Female
  Weight: 45 kg

DRUGS (10)
  1. PANTOPRAZOLE [Concomitant]
     Indication: DYSPEPSIA
  2. LIPITOR [Concomitant]
     Indication: BLOOD CHOLESTEROL INCREASED
     Dosage: 10 MG, QD
     Dates: end: 20110502
  3. VALOID [Concomitant]
     Indication: NAUSEA
     Dosage: 50 MG, PRN
     Dates: start: 20110504
  4. ACETAMINOPHEN [Concomitant]
     Indication: PAIN
     Dosage: 1 G, QID
  5. AFINITOR [Suspect]
     Indication: BREAST CANCER METASTATIC
     Dosage: 5 MG, UNK
     Route: 048
     Dates: start: 20110204, end: 20110530
  6. PACLITAXEL [Suspect]
     Dosage: 60 MG/M2
     Route: 042
     Dates: start: 20110318, end: 20110415
  7. COMPARATOR TRASTUZUMAB [Suspect]
     Indication: BREAST CANCER METASTATIC
     Dosage: 90 MG, WEEKLY
     Route: 042
     Dates: start: 20110204
  8. MICARDIS [Concomitant]
     Indication: HYPERTENSION
     Dosage: 40 MG, QD
     Dates: start: 20060101, end: 20110502
  9. PACLITAXEL [Suspect]
     Indication: BREAST CANCER METASTATIC
     Dosage: 90 MG, WEEKLY
     Route: 042
     Dates: start: 20110204, end: 20110527
  10. PANTOPRAZOLE [Concomitant]
     Indication: NAUSEA
     Dosage: 40 MG, QD
     Dates: start: 20110304, end: 20110502

REACTIONS (3)
  - WEIGHT DECREASED [None]
  - FATIGUE [None]
  - DECREASED APPETITE [None]
